FAERS Safety Report 8554596-9 (Version None)
Quarter: 2012Q3

REPORT INFORMATION
  Report Type: 
  Country: None (occurrence: None)
  Receive Date: 20120731
  Receipt Date: 20120726
  Transmission Date: 20120928
  Serious: Yes (Other)
  Sender: FDA-Public Use
  Company Number: US-PFIZER INC-2012182783

PATIENT
  Sex: Female

DRUGS (3)
  1. ZOLOFT [Suspect]
     Indication: PANIC ATTACK
     Dosage: 50 MG, UNK
  2. ZOLOFT [Suspect]
     Indication: ANXIETY
     Dosage: 25 MG, UNK
  3. ZOLOFT [Suspect]
     Dosage: 100 MG, UNK

REACTIONS (2)
  - ANXIETY [None]
  - PANIC ATTACK [None]
